FAERS Safety Report 9216592 (Version 1)
Quarter: 2013Q1

REPORT INFORMATION
  Report Type: Spontaneous
  Country: US (occurrence: None)
  Receive Date: 20120827
  Receipt Date: 20120827
  Transmission Date: 20140127
  Serious: No
  Sender: FDA-Public Use
  Company Number: 344293

PATIENT
  Age: 67 Year
  Sex: Female
  Weight: 111.1 kg

DRUGS (1)
  1. VICTOZA [Suspect]
     Indication: OBESITY
     Dates: start: 201110

REACTIONS (1)
  - Injection site erythema [None]
